FAERS Safety Report 7347864-X (Version None)
Quarter: 2011Q1

REPORT INFORMATION
  Report Type: 
  Country: None (occurrence: None)
  Receive Date: 20110311
  Receipt Date: 20110308
  Transmission Date: 20110831
  Serious: Yes (Death, Hospitalization, Other)
  Sender: FDA-Public Use
  Company Number: ES-ABBOTT-11P-144-0709642-00

PATIENT
  Age: 81 Year
  Sex: Male
  Weight: 59.5 kg

DRUGS (10)
  1. SALICILIC ACETIL ACID [Concomitant]
     Indication: ISCHAEMIC CARDIOMYOPATHY
     Route: 048
     Dates: start: 20110112, end: 20110201
  2. ACFOL [Concomitant]
     Indication: PRODUCT USED FOR UNKNOWN INDICATION
     Dates: start: 20100219, end: 20110101
  3. SALAZOPIRINA [Concomitant]
     Indication: SPONDYLOARTHROPATHY
     Route: 048
     Dates: start: 20080825, end: 20110101
  4. HIPERTENE [Concomitant]
     Indication: HYPERTENSION
     Route: 048
  5. ACREL [Concomitant]
     Indication: OSTEOPOROSIS
     Route: 048
     Dates: start: 20080825, end: 20110101
  6. IDEOS [Concomitant]
     Indication: OSTEOPOROSIS
     Route: 048
     Dates: start: 20080825, end: 20110101
  7. HUMIRA [Suspect]
     Indication: PSORIASIS
     Route: 058
     Dates: start: 20100401, end: 20110101
  8. PAZITAL [Concomitant]
     Indication: SPONDYLOARTHROPATHY
  9. SALICILIC ACETIL ACID [Concomitant]
     Indication: PROPHYLAXIS
  10. PAZITAL [Concomitant]
     Indication: PAIN
     Route: 048
     Dates: start: 20080825, end: 20110101

REACTIONS (17)
  - LACUNAR INFARCTION [None]
  - CONFUSIONAL STATE [None]
  - ERYTHRODERMIC PSORIASIS [None]
  - DRUG INEFFECTIVE [None]
  - LOSS OF CONSCIOUSNESS [None]
  - CYANOSIS [None]
  - LUNG CONSOLIDATION [None]
  - MULTI-ORGAN FAILURE [None]
  - SEPTIC SHOCK [None]
  - ABDOMINAL PAIN [None]
  - MUSCULOSKELETAL STIFFNESS [None]
  - SYNCOPE [None]
  - CEREBROVASCULAR DISORDER [None]
  - ABDOMINAL PAIN UPPER [None]
  - VOMITING [None]
  - ILL-DEFINED DISORDER [None]
  - HYPERTONIA [None]
